FAERS Safety Report 18749497 (Version 1)
Quarter: 2021Q1

REPORT INFORMATION
  Report Type: Report from Study
  Country: BR (occurrence: BR)
  Receive Date: 20210116
  Receipt Date: 20210116
  Transmission Date: 20210419
  Serious: Yes (Other)
  Sender: FDA-Public Use
  Company Number: BR-UCBSA-2021000876

PATIENT
  Age: 63 Year
  Sex: Female
  Weight: 74 kg

DRUGS (8)
  1. SINVASTATINA [Concomitant]
     Active Substance: SIMVASTATIN
     Indication: BLOOD CHOLESTEROL INCREASED
     Dosage: 1 TABLET DAILY
     Route: 048
  2. CERTOLIZUMAB PEGOL RA [Suspect]
     Active Substance: CERTOLIZUMAB PEGOL
     Indication: RHEUMATOID ARTHRITIS
     Dosage: 400 MILLIGRAM, EV 30 DAYS
     Route: 058
     Dates: start: 20190423
  3. ARAVA [Concomitant]
     Active Substance: LEFLUNOMIDE
     Indication: RHEUMATOID ARTHRITIS
     Dosage: 1 TABLET DAILY
     Route: 048
  4. LOSARTAN. [Concomitant]
     Active Substance: LOSARTAN
     Indication: PRODUCT USED FOR UNKNOWN INDICATION
     Dosage: 1 TABLET DAILY
     Route: 048
  5. PURAN [Concomitant]
     Active Substance: LEVOTHYROXINE SODIUM
     Indication: BLOOD THYROID STIMULATING HORMONE
     Dosage: 1 TABLET DAILY
     Route: 048
  6. PREDNISONA [Concomitant]
     Active Substance: PREDNISONE
     Indication: RHEUMATOID ARTHRITIS
  7. PREDNISONA [Concomitant]
     Active Substance: PREDNISONE
     Indication: INFECTION
     Dosage: 1 TABLET DAILY
     Route: 048
  8. DIPIRONA [Concomitant]
     Active Substance: METAMIZOLE
     Indication: INFECTION
     Dosage: 40 DROPS IN EVERY 12 HOURS
     Route: 048
     Dates: start: 2020

REACTIONS (5)
  - Nephrolithiasis [Recovered/Resolved]
  - Product dose omission issue [Unknown]
  - Kidney infection [Recovered/Resolved]
  - Pain [Recovered/Resolved]
  - Cardiac disorder [Not Recovered/Not Resolved]

NARRATIVE: CASE EVENT DATE: 201908
